FAERS Safety Report 9840198 (Version 1)
Quarter: 2014Q1

REPORT INFORMATION
  Report Type: Report from Study
  Country: US (occurrence: US)
  Receive Date: 20140124
  Receipt Date: 20140124
  Transmission Date: 20141002
  Serious: Yes (Death)
  Sender: FDA-Public Use
  Company Number: US-ROCHE-1316039

PATIENT
  Sex: Female

DRUGS (2)
  1. AVASTIN [Suspect]
     Indication: ENDOMETRIAL CANCER METASTATIC
     Route: 042
  2. TEMSIROLIMUS [Concomitant]
     Route: 042

REACTIONS (2)
  - Death [Fatal]
  - Off label use [Unknown]
